FAERS Safety Report 14258312 (Version 1)
Quarter: 2017Q4

REPORT INFORMATION
  Report Type: Spontaneous
  Country: PL (occurrence: PL)
  Receive Date: 20171207
  Receipt Date: 20171207
  Transmission Date: 20180321
  Serious: Yes (Other)
  Sender: FDA-Public Use
  Company Number: PL-CIPLA LTD.-2017PL21463

PATIENT

DRUGS (3)
  1. CISPLATIN. [Suspect]
     Active Substance: CISPLATIN
     Indication: OVARIAN CANCER STAGE III
     Dosage: 70 MG/M2 EVERY 3 WEEKS
     Route: 065
     Dates: start: 201301, end: 201306
  2. PACLITAXEL. [Suspect]
     Active Substance: PACLITAXEL
     Indication: OVARIAN CANCER STAGE III
     Dosage: 175 MG/M2, 6 CYCLES, ADMINISTERED EVERY 3 WEEKS
     Route: 042
  3. CARBOPLATIN. [Suspect]
     Active Substance: CARBOPLATIN
     Indication: OVARIAN CANCER STAGE III
     Dosage: AUC 5, 6 CYCLES ADMINISTERED EVERY 3 WEEKS
     Route: 042

REACTIONS (2)
  - Renal failure [Unknown]
  - Disease progression [Unknown]
